FAERS Safety Report 19022391 (Version 1)
Quarter: 2021Q1

REPORT INFORMATION
  Report Type: Spontaneous
  Country: US (occurrence: US)
  Receive Date: 20210317
  Receipt Date: 20210317
  Transmission Date: 20210420
  Serious: Yes (Other)
  Sender: FDA-Public Use
  Company Number: US-ORGANON-2012USA006500

PATIENT
  Age: 19 Year
  Sex: Female

DRUGS (2)
  1. NEXPLANON [Suspect]
     Active Substance: ETONOGESTREL
     Dosage: 68 MILLIGRAM, EVERY 3 YEARS, LEFT UPPER ARM
     Route: 059
     Dates: start: 20201104, end: 20201104
  2. NEXPLANON [Suspect]
     Active Substance: ETONOGESTREL
     Dosage: UNK
     Dates: start: 2017, end: 20201104

REACTIONS (7)
  - Complication of device insertion [Unknown]
  - Device placement issue [Recovered/Resolved]
  - Device issue [Recovered/Resolved]
  - Implant site fibrosis [Unknown]
  - Complication of device removal [Recovered/Resolved]
  - Product quality issue [Unknown]
  - Device dislocation [Recovered/Resolved]

NARRATIVE: CASE EVENT DATE: 2017
